FAERS Safety Report 18471572 (Version 1)
Quarter: 2020Q4

REPORT INFORMATION
  Report Type: Spontaneous
  Country: CN (occurrence: CN)
  Receive Date: 20201106
  Receipt Date: 20201106
  Transmission Date: 20210114
  Serious: Yes (Other)
  Sender: FDA-Public Use
  Company Number: CN-BAXTER-2020BAX022415

PATIENT
  Age: 48 Year
  Sex: Female
  Weight: 51.5 kg

DRUGS (4)
  1. 0.9% SODIUM CHLORIDE INJECTION [Suspect]
     Active Substance: SODIUM CHLORIDE
     Dosage: TAXOTERE 112MG + NS 250ML?FIRST CHEMOTHERAPY
     Route: 041
     Dates: start: 20200828, end: 20200828
  2. ENDOXAN [Suspect]
     Active Substance: CYCLOPHOSPHAMIDE
     Indication: BREAST CANCER FEMALE
     Dosage: ENDOXAN+ NS 45ML?FIRST CHEMOTHERAPY
     Route: 042
     Dates: start: 20200828, end: 20200828
  3. 0.9% SODIUM CHLORIDE INJECTION [Suspect]
     Active Substance: SODIUM CHLORIDE
     Indication: MEDICATION DILUTION
     Dosage: ENDOXAN 900 MG + NS 45ML?FIRST CHEMOTHERAPY
     Route: 042
     Dates: start: 20200828, end: 20200828
  4. TAXOTERE [Suspect]
     Active Substance: DOCETAXEL
     Indication: BREAST CANCER FEMALE
     Dosage: TAXOTERE 112MG + NS 250ML?FIRST CHEMOTHERAPY
     Route: 041
     Dates: start: 20200828, end: 20200828

REACTIONS (1)
  - Agranulocytosis [Recovered/Resolved]

NARRATIVE: CASE EVENT DATE: 20200903
